FAERS Safety Report 17363080 (Version 11)
Quarter: 2022Q4

REPORT INFORMATION
  Report Type: Report from Study
  Country: MY (occurrence: MY)
  Receive Date: 20200203
  Receipt Date: 20221109
  Transmission Date: 20230112
  Serious: Yes (Hospitalization)
  Sender: FDA-Public Use
  Company Number: NVSC2020MY016963

PATIENT
  Age: 61 Year
  Sex: Male
  Weight: 51.1 kg

DRUGS (28)
  1. PEMETREXED DISODIUM [Suspect]
     Active Substance: PEMETREXED DISODIUM
     Indication: Non-small cell lung cancer
     Dosage: 725 MG, Q3W
     Route: 042
     Dates: start: 20191031, end: 20200203
  2. PEMETREXED DISODIUM [Suspect]
     Active Substance: PEMETREXED DISODIUM
     Dosage: 500 MG, Q3W
     Route: 042
     Dates: start: 20200212
  3. PEMBROLIZUMAB [Suspect]
     Active Substance: PEMBROLIZUMAB
     Indication: Non-small cell lung cancer
     Dosage: 200 MG, Q3W
     Route: 042
     Dates: start: 20191031, end: 20200203
  4. PEMBROLIZUMAB [Suspect]
     Active Substance: PEMBROLIZUMAB
     Dosage: 200 MG, Q3W
     Route: 042
     Dates: start: 20200212
  5. CANAKINUMAB [Suspect]
     Active Substance: CANAKINUMAB
     Indication: Non-small cell lung cancer
     Dosage: 200 MG, Q3W
     Route: 058
     Dates: start: 20191031, end: 20191031
  6. CANAKINUMAB [Suspect]
     Active Substance: CANAKINUMAB
     Dosage: 200 MG, Q3W
     Route: 058
     Dates: start: 20191204
  7. VITAMINS [Concomitant]
     Active Substance: VITAMINS
     Indication: Supplementation therapy
     Dosage: UNK
     Route: 065
     Dates: start: 20191031
  8. HYDROCORTISONE [Concomitant]
     Active Substance: HYDROCORTISONE
     Indication: Pneumonia
     Dosage: UNK
     Route: 065
     Dates: start: 20191107, end: 20191111
  9. ENOXAPARIN [Concomitant]
     Active Substance: ENOXAPARIN
     Indication: Pneumonia
     Dosage: UNK
     Route: 065
     Dates: start: 20191108, end: 20191111
  10. PANTOPRAZOLE [Concomitant]
     Active Substance: PANTOPRAZOLE
     Indication: Pneumonia
     Dosage: UNK
     Route: 065
     Dates: start: 20191108, end: 20191112
  11. FERROUS SULFATE [Concomitant]
     Active Substance: FERROUS SULFATE
     Indication: Supplementation therapy
     Dosage: UNK
     Route: 065
     Dates: start: 20191031
  12. FERROUS SULFATE [Concomitant]
     Active Substance: FERROUS SULFATE
     Indication: Anaemia
  13. AZITHROMYCIN [Concomitant]
     Active Substance: AZITHROMYCIN
     Indication: Pneumonia
     Dosage: UNK
     Route: 065
     Dates: start: 20191107, end: 20191109
  14. MEROPENEM [Concomitant]
     Active Substance: MEROPENEM
     Indication: Pneumonia
     Dosage: UNK
     Route: 065
     Dates: start: 20191107, end: 20191110
  15. OMEPRAZOLE [Concomitant]
     Active Substance: OMEPRAZOLE
     Indication: Pneumonia
     Dosage: UNK
     Route: 065
     Dates: start: 20191107, end: 20191107
  16. SODIUM CHLORIDE [Concomitant]
     Active Substance: SODIUM CHLORIDE
     Indication: Premedication
     Dosage: UNK
     Route: 065
     Dates: start: 20191031
  17. SODIUM CHLORIDE [Concomitant]
     Active Substance: SODIUM CHLORIDE
     Indication: Pneumonia
     Dosage: 3 %
     Route: 065
     Dates: start: 20191108, end: 20191111
  18. BROMHEXINE [Concomitant]
     Active Substance: BROMHEXINE
     Indication: Pneumonia
     Dosage: UNK
     Route: 065
     Dates: start: 20191108, end: 20191112
  19. PIPERACILLIN AND TAZOBACTAM [Concomitant]
     Active Substance: PIPERACILLIN SODIUM\TAZOBACTAM SODIUM
     Indication: Pneumonia
     Dosage: UNK
     Route: 065
     Dates: start: 20191110, end: 20191112
  20. FENTANYL [Concomitant]
     Active Substance: FENTANYL
     Indication: Pneumonia
     Dosage: UNK
     Route: 065
     Dates: start: 20191107, end: 20191107
  21. ROCURONIUM [Concomitant]
     Active Substance: ROCURONIUM BROMIDE
     Indication: Pneumonia
     Dosage: UNK
     Route: 065
     Dates: start: 20191107, end: 20191107
  22. MIDAZOLAM [Concomitant]
     Active Substance: MIDAZOLAM
     Indication: Pneumonia
     Dosage: UNK
     Route: 065
     Dates: start: 20191107, end: 20191107
  23. NOREPINEPHRINE [Concomitant]
     Active Substance: NOREPINEPHRINE
     Indication: Pneumonia
     Dosage: UNK
     Route: 065
     Dates: start: 20191107, end: 20191108
  24. CLARITIN [Concomitant]
     Active Substance: LORATADINE
     Indication: Pruritus
     Dosage: UNK
     Route: 065
     Dates: start: 20200106
  25. POTASSIUM CHLORIDE [Concomitant]
     Active Substance: POTASSIUM CHLORIDE
     Indication: Premedication
     Dosage: UNK
     Route: 065
     Dates: start: 20191031
  26. MANNITOL [Concomitant]
     Active Substance: MANNITOL
     Indication: Premedication
     Dosage: UNK
     Route: 065
     Dates: start: 20191031
  27. GRANISETRON [Concomitant]
     Active Substance: GRANISETRON
     Indication: Premedication
     Dosage: UNK
     Route: 065
     Dates: start: 20191031
  28. METOCLOPRAMIDE [Concomitant]
     Active Substance: METOCLOPRAMIDE
     Indication: Chemotherapy side effect prophylaxis
     Dosage: UNK
     Route: 065
     Dates: start: 20190212

REACTIONS (1)
  - Pneumonia [Recovered/Resolved]

NARRATIVE: CASE EVENT DATE: 20200114
